FAERS Safety Report 5477267-4 (Version None)
Quarter: 2007Q4

REPORT INFORMATION
  Report Type: 
  Country: None (occurrence: None)
  Receive Date: 20071004
  Receipt Date: 20070925
  Transmission Date: 20080405
  Serious: Yes (Hospitalization, Other)
  Sender: FDA-Public Use
  Company Number: US-ELI_LILLY_AND_COMPANY-US200709006198

PATIENT
  Age: 75 Year
  Sex: Female

DRUGS (2)
  1. FORTEO [Suspect]
     Indication: MULTIPLE FRACTURES
     Dosage: UNK, DAILY (1/D)
     Dates: start: 20060101
  2. CALCIUM [Concomitant]
     Indication: OSTEOPOROSIS
     Dosage: 2 PILLS TWICE A DAY

REACTIONS (7)
  - ARTHROPATHY [None]
  - ASTHENIA [None]
  - INFECTION [None]
  - MEDICAL DEVICE COMPLICATION [None]
  - OEDEMA PERIPHERAL [None]
  - PAIN [None]
  - PAIN IN EXTREMITY [None]
